FAERS Safety Report 15181022 (Version 1)
Quarter: 2018Q3

REPORT INFORMATION
  Report Type: Spontaneous
  Country: PL (occurrence: PL)
  Receive Date: 20180723
  Receipt Date: 20180723
  Transmission Date: 20181010
  Serious: Yes (Hospitalization, Other)
  Sender: FDA-Public Use
  Company Number: PL-OTSUKA-2018_024320

PATIENT
  Age: 36 Year
  Sex: Female

DRUGS (8)
  1. RISPOLEPT CONSTA [Suspect]
     Active Substance: RISPERIDONE
     Dosage: 50 MG, BIW
     Route: 030
  2. RISPOLEPT [Suspect]
     Active Substance: RISPERIDONE
     Dosage: 3 MG, UNK
     Route: 048
  3. ABILIFY [Suspect]
     Active Substance: ARIPIPRAZOLE
     Indication: ACUTE PSYCHOSIS
     Dosage: 15 MG, UNK
     Route: 065
  4. ABILIFY [Suspect]
     Active Substance: ARIPIPRAZOLE
     Dosage: 30 MG, UNK
     Route: 065
  5. RISPOLEPT CONSTA [Suspect]
     Active Substance: RISPERIDONE
     Indication: ACUTE PSYCHOSIS
     Dosage: 37.5 MG, BIW
     Route: 030
  6. RISPOLEPT [Suspect]
     Active Substance: RISPERIDONE
     Indication: ACUTE PSYCHOSIS
     Dosage: 6 MG, UNK
     Route: 048
  7. DEPAKINE [Suspect]
     Active Substance: VALPROATE SODIUM
     Indication: ACUTE PSYCHOSIS
     Dosage: 1000 MG, QD
     Route: 065
  8. DEPAKINE [Suspect]
     Active Substance: VALPROATE SODIUM
     Dosage: 500 MG, UNK
     Route: 065

REACTIONS (8)
  - Insomnia [Recovered/Resolved]
  - Treatment noncompliance [Unknown]
  - Drug ineffective [Unknown]
  - Psychomotor skills impaired [Recovered/Resolved]
  - Weight increased [Unknown]
  - Mental impairment [Unknown]
  - Product use in unapproved indication [Unknown]
  - Hospitalisation [Unknown]
